FAERS Safety Report 11488605 (Version 1)
Quarter: 2015Q3

REPORT INFORMATION
  Report Type: Spontaneous
  Country: US (occurrence: US)
  Receive Date: 20150910
  Receipt Date: 20150910
  Transmission Date: 20151125
  Serious: No
  Sender: FDA-Public Use
  Company Number: US-ROCHE-1496013

PATIENT
  Sex: Female

DRUGS (3)
  1. RIBAVIRIN. [Suspect]
     Active Substance: RIBAVIRIN
     Indication: CHRONIC HEPATITIS C
     Dosage: LAST DOSE RECEIVED ON 17/NOV/2014
     Route: 048
     Dates: start: 20140825
  2. PEGASYS [Suspect]
     Active Substance: PEGINTERFERON ALFA-2A
     Indication: CHRONIC HEPATITIS C
     Dosage: LAST DOSE RECEIVED ON 10/NOV/2014
     Route: 058
     Dates: start: 20140825
  3. SOVALDI [Suspect]
     Active Substance: SOFOSBUVIR
     Indication: CHRONIC HEPATITIS C
     Dosage: LAST DOSE RECEIVED ON 17/NOV/2014
     Route: 065
     Dates: start: 20140825

REACTIONS (3)
  - Red blood cell count decreased [Unknown]
  - Fatigue [Unknown]
  - White blood cell count decreased [Unknown]
